FAERS Safety Report 6162754-6 (Version None)
Quarter: 2009Q2

REPORT INFORMATION
  Report Type: 
  Country: None (occurrence: None)
  Receive Date: 20090421
  Receipt Date: 20080501
  Transmission Date: 20091009
  Serious: No
  Sender: FDA-Public Use
  Company Number: US-ASTRAZENECA-2008UW08987

PATIENT
  Age: 41 Year
  Sex: Female
  Weight: 86.2 kg

DRUGS (5)
  1. METOPROLOL SUCCINATE [Suspect]
     Indication: HEART RATE INCREASED
     Route: 048
     Dates: start: 20080424
  2. METOPROLOL SUCCINATE [Suspect]
     Indication: CHEST PAIN
     Route: 048
     Dates: start: 20080424
  3. METOPROLOL SUCCINATE [Suspect]
     Indication: HYPERTENSION
     Route: 048
     Dates: start: 20080424
  4. DAPSONE [Concomitant]
  5. ASPIRIN [Concomitant]

REACTIONS (2)
  - BLISTER [None]
  - PRURITUS [None]
